FAERS Safety Report 23349559 (Version 2)
Quarter: 2024Q1

REPORT INFORMATION
  Report Type: Report from Study
  Country: US (occurrence: US)
  Receive Date: 20231229
  Receipt Date: 20240329
  Transmission Date: 20240409
  Serious: Yes (Other)
  Sender: FDA-Public Use
  Company Number: US-TAKEDA-2023TUS072218

PATIENT
  Sex: Female
  Weight: 60 kg

DRUGS (2)
  1. VELAGLUCERASE ALFA [Suspect]
     Active Substance: VELAGLUCERASE ALFA
     Indication: Gaucher^s disease
     Dosage: UNK UNK, Q2WEEKS
     Route: 050
     Dates: start: 20230626
  2. VELAGLUCERASE ALFA [Suspect]
     Active Substance: VELAGLUCERASE ALFA
     Dosage: UNK UNK, Q2WEEKS
     Route: 042
     Dates: start: 20230628

REACTIONS (3)
  - Infusion site erythema [Recovered/Resolved]
  - Infusion site pruritus [Recovered/Resolved]
  - Dry skin [Recovered/Resolved]
